FAERS Safety Report 4277487-0 (Version None)
Quarter: 2004Q1

REPORT INFORMATION
  Report Type: 
  Country: None (occurrence: None)
  Receive Date: 20040122
  Receipt Date: 20040112
  Transmission Date: 20041129
  Serious: Yes (Life-Threatening, Hospitalization, Other)
  Sender: FDA-Public Use
  Company Number: WAES 0401USA00957

PATIENT
  Age: 40 Year
  Sex: Male
  Weight: 77 kg

DRUGS (4)
  1. ULTRACET [Concomitant]
  2. SOMA COMPOUND W/ CODEINE [Concomitant]
     Indication: PAIN
     Route: 048
     Dates: start: 20030604
  3. VIOXX [Suspect]
     Indication: PAIN
     Route: 048
     Dates: start: 20030604, end: 20030801
  4. VIOXX [Suspect]
     Indication: INFLAMMATION
     Route: 048
     Dates: start: 20030604, end: 20030801

REACTIONS (1)
  - MYOCARDIAL INFARCTION [None]
